FAERS Safety Report 7661319-4 (Version None)
Quarter: 2011Q3

REPORT INFORMATION
  Report Type: 
  Country: None (occurrence: None)
  Receive Date: 20110805
  Receipt Date: 20101006
  Transmission Date: 20111222
  Serious: No
  Sender: FDA-Public Use
  Company Number: US-ABBOTT-10P-163-0676218-00

PATIENT
  Sex: Female

DRUGS (2)
  1. NIASPAN [Suspect]
     Indication: PRODUCT USED FOR UNKNOWN INDICATION
     Dosage: ONE HOUR BEFORE BEDTIME
     Route: 048
     Dates: start: 20101003
  2. ASPIRIN [Concomitant]
     Indication: PRODUCT USED FOR UNKNOWN INDICATION
     Dosage: 1/2 HOUR BEFORE HER DOSE OF NIASPAN

REACTIONS (3)
  - PHARYNGEAL OEDEMA [None]
  - FLUSHING [None]
  - COUGH [None]
